FAERS Safety Report 7496085-9 (Version None)
Quarter: 2011Q2

REPORT INFORMATION
  Report Type: 
  Country: None (occurrence: None)
  Receive Date: 20110513
  Receipt Date: 20110505
  Transmission Date: 20111010
  Serious: Yes (Hospitalization)
  Sender: FDA-Public Use
  Company Number: TRP_07687_2011

PATIENT
  Sex: Female

DRUGS (2)
  1. INFERGEN [Suspect]
     Indication: PRODUCT USED FOR UNKNOWN INDICATION
     Dosage: 15 UG QD, SUBCUTANEOUS
     Route: 058
  2. RIBAVIRIN [Suspect]
     Indication: PRODUCT USED FOR UNKNOWN INDICATION
     Dosage: 600 MG, BID,

REACTIONS (4)
  - INTERNATIONAL NORMALISED RATIO INCREASED [None]
  - IRON OVERLOAD [None]
  - FATIGUE [None]
  - HAEMOGLOBIN DECREASED [None]
